FAERS Safety Report 19137547 (Version 5)
Quarter: 2021Q4

REPORT INFORMATION
  Report Type: Spontaneous
  Country: US (occurrence: US)
  Receive Date: 20210415
  Receipt Date: 20211221
  Transmission Date: 20220303
  Serious: No
  Sender: FDA-Public Use
  Company Number: US-DSJP-DSU-2021-111612

PATIENT
  Age: 55 Year
  Sex: Male

DRUGS (5)
  1. TURALIO [Suspect]
     Active Substance: PEXIDARTINIB HYDROCHLORIDE
     Indication: Giant cell tumour of tendon sheath
     Dosage: 400 MG, BID
     Route: 048
     Dates: start: 20210313
  2. TURALIO [Suspect]
     Active Substance: PEXIDARTINIB HYDROCHLORIDE
     Dosage: 400 MG, BID
     Route: 048
     Dates: start: 20210313
  3. ETANERCEPT [Concomitant]
     Active Substance: ETANERCEPT
     Indication: Product used for unknown indication
     Dosage: UNK
     Route: 065
  4. CHOLECALCIFEROL [Concomitant]
     Active Substance: CHOLECALCIFEROL
     Indication: Product used for unknown indication
     Dosage: 25 UG
     Route: 065
  5. OMEGA-3 FATTY ACIDS [Concomitant]
     Active Substance: OMEGA-3 FATTY ACIDS
     Indication: Product used for unknown indication
     Dosage: 1000 MG CAPSULE
     Route: 065

REACTIONS (4)
  - Product dose omission issue [Unknown]
  - Sunburn [Recovered/Resolved]
  - Skin hypopigmentation [Recovered/Resolved]
  - Ocular discomfort [Recovered/Resolved]

NARRATIVE: CASE EVENT DATE: 20210410
